FAERS Safety Report 8843118 (Version 2)
Quarter: 2015Q2

REPORT INFORMATION
  Report Type: Report from Study
  Country: US (occurrence: US)
  Receive Date: 20121016
  Receipt Date: 20150622
  Transmission Date: 20150821
  Serious: Yes (Other)
  Sender: FDA-Public Use
  Company Number: US-ROCHE-1122333

PATIENT
  Sex: Female

DRUGS (7)
  1. TAXOL [Concomitant]
     Active Substance: PACLITAXEL
     Route: 042
  2. FOSAMAX [Concomitant]
     Active Substance: ALENDRONATE SODIUM
  3. CARBOPLATIN. [Concomitant]
     Active Substance: CARBOPLATIN
     Route: 042
  4. DECADRON [Concomitant]
     Active Substance: DEXAMETHASONE
     Route: 042
  5. AVASTIN [Concomitant]
     Active Substance: BEVACIZUMAB
     Route: 065
     Dates: start: 20080609
  6. NUTROPIN [Suspect]
     Active Substance: SOMATROPIN
     Indication: DWARFISM
     Route: 042
     Dates: start: 20030507, end: 200601
  7. ANZEMET [Concomitant]
     Active Substance: DOLASETRON MESYLATE
     Route: 042

REACTIONS (1)
  - Lung neoplasm malignant [Unknown]
